FAERS Safety Report 9834940 (Version 1)
Quarter: 2014Q1

REPORT INFORMATION
  Report Type: Spontaneous
  Country: PT (occurrence: PT)
  Receive Date: 20140122
  Receipt Date: 20140122
  Transmission Date: 20141002
  Serious: Yes (Death, Life-Threatening, Hospitalization)
  Sender: FDA-Public Use
  Company Number: PT-GLAXOSMITHKLINE-B0962440A

PATIENT
  Age: 76 Year
  Sex: Female

DRUGS (4)
  1. VOTRIENT [Suspect]
     Indication: METASTATIC RENAL CELL CARCINOMA
     Dosage: 800MG PER DAY
     Route: 048
     Dates: start: 20131031, end: 20131210
  2. OMEPRAZOLE [Concomitant]
     Indication: GASTRITIS
     Dosage: 20MG PER DAY
     Route: 048
  3. PARACETAMOL [Concomitant]
     Indication: PAIN
     Dosage: 1G PER DAY
     Route: 048
  4. TRAMADOL [Concomitant]
     Indication: PAIN
     Dosage: 50MG PER DAY
     Route: 048

REACTIONS (2)
  - Hepatitis toxic [Fatal]
  - Blood bilirubin increased [Fatal]
